FAERS Safety Report 4667122-1 (Version None)
Quarter: 2005Q2

REPORT INFORMATION
  Report Type: 
  Country: None (occurrence: None)
  Receive Date: 20050520
  Receipt Date: 20040329
  Transmission Date: 20051028
  Serious: Yes (Other)
  Sender: FDA-Public Use
  Company Number: PHEH2004US03575

PATIENT
  Age: 67 Year
  Sex: Female

DRUGS (4)
  1. PAXIL [Concomitant]
     Indication: DEPRESSION
     Dosage: 20 MG, QD
     Route: 048
  2. TYLENOL (CAPLET) [Concomitant]
     Indication: PAIN
     Dosage: 100 MG PRN
     Route: 048
  3. OXYCONTIN [Concomitant]
     Indication: PAIN
     Dosage: 30 MG, BID
     Route: 048
  4. ZOMETA [Suspect]
     Indication: BREAST CANCER
     Dosage: 4 MG 1 TIME PER MONTH
     Route: 042
     Dates: start: 20020101, end: 20030101

REACTIONS (4)
  - ASEPTIC NECROSIS BONE [None]
  - BONE DISORDER [None]
  - INFECTION [None]
  - PAIN [None]
